FAERS Safety Report 20326761 (Version 1)
Quarter: 2022Q1

REPORT INFORMATION
  Report Type: Spontaneous
  Country: US (occurrence: None)
  Receive Date: 20220111
  Receipt Date: 20220111
  Transmission Date: 20220424
  Serious: No
  Sender: FDA-Public Use
  Company Number: None

PATIENT
  Age: 43 Year
  Sex: Male

DRUGS (1)
  1. SUNITINIB [Suspect]
     Active Substance: SUNITINIB
     Indication: Gastrointestinal stromal tumour
     Dosage: OTHER FREQUENCY : 50MG-PRESENT 37.5M;?
     Route: 048
     Dates: start: 202109

REACTIONS (6)
  - Weight decreased [None]
  - Abdominal pain [None]
  - Hepatic enzyme increased [None]
  - Jaundice [None]
  - Skin lesion [None]
  - Hair colour changes [None]

NARRATIVE: CASE EVENT DATE: 20211230
